FAERS Safety Report 5246496-7 (Version None)
Quarter: 2007Q1

REPORT INFORMATION
  Report Type: 
  Country: None (occurrence: None)
  Receive Date: 20070216
  Receipt Date: 20070207
  Transmission Date: 20070707
  Serious: Yes (Hospitalization)
  Sender: FDA-Public Use
  Company Number: TPA2006A02109

PATIENT
  Age: 58 Year
  Sex: Female
  Weight: 83.7 kg

DRUGS (8)
  1. PIOGLITAZONE HCL [Suspect]
     Indication: GLUCOSE TOLERANCE IMPAIRED
     Dosage: 45 MG, 1 IN 1 D; PER ORAL, 45 MG, 1 IN 1 D, PER ORAL
     Route: 048
     Dates: start: 20060130, end: 20061023
  2. PIOGLITAZONE HCL [Suspect]
     Indication: GLUCOSE TOLERANCE IMPAIRED
     Dosage: 45 MG, 1 IN 1 D; PER ORAL, 45 MG, 1 IN 1 D, PER ORAL
     Route: 048
     Dates: start: 20061125
  3. HYDROCHLOROTHIAZIDE [Concomitant]
  4. ASPIRIN [Concomitant]
  5. NIFEDIPINE ER (NIFEDIPINE) [Concomitant]
  6. ZOCOR [Concomitant]
  7. POTASSIUM CHLORIDE [Concomitant]
  8. FLONASE [Concomitant]

REACTIONS (3)
  - ARRHYTHMIA [None]
  - PALPITATIONS [None]
  - SUPRAVENTRICULAR TACHYCARDIA [None]
